FAERS Safety Report 8524547-1 (Version None)
Quarter: 2012Q2

REPORT INFORMATION
  Report Type: 
  Country: None (occurrence: None)
  Receive Date: 20120406
  Receipt Date: 20120126
  Transmission Date: 20120825
  Serious: Yes (Other)
  Sender: FDA-Public Use
  Company Number: US-2012-10078

PATIENT
  Age: 15 Year
  Sex: Female

DRUGS (2)
  1. BUSULFEX [Suspect]
     Dosage: 12.8 MG/KG, DAILY DOSE, INTRAVENOUS ; 16.0 MG/KG, DAILY DOSE, INTRAVENOUS
     Route: 042
  2. CYCLOPHOSPHAMIDE [Suspect]
     Dosage: 60 MG/KG, DAILY DOSE, INTRAVENOUS
     Route: 042

REACTIONS (1)
  - VENOOCCLUSIVE LIVER DISEASE [None]
